FAERS Safety Report 19647526 (Version 8)
Quarter: 2022Q3

REPORT INFORMATION
  Report Type: Report from Study
  Country: US (occurrence: US)
  Receive Date: 20210802
  Receipt Date: 20220711
  Transmission Date: 20221027
  Serious: No
  Sender: FDA-Public Use
  Company Number: US-NOVARTISTESTPH-NVSC2021US172228

PATIENT
  Sex: Male

DRUGS (3)
  1. ENTRESTO [Suspect]
     Active Substance: SACUBITRIL\VALSARTAN
     Indication: Product used for unknown indication
     Dosage: 1 DOSAGE FORM, BID (24/26 MG)
     Route: 048
  2. ENTRESTO [Suspect]
     Active Substance: SACUBITRIL\VALSARTAN
     Dosage: 1 DOSAGE FORM, BID (97/103 MG)
     Route: 048
  3. ENTRESTO [Suspect]
     Active Substance: SACUBITRIL\VALSARTAN
     Dosage: 0.5 DOSAGE FORM, BID (CUTTING HIS 97/103MG TABLETS TO EQUAL A DOSAGE OF 49/51MG BID)
     Route: 065

REACTIONS (14)
  - Myalgia [Unknown]
  - Back pain [Unknown]
  - Discomfort [Recovering/Resolving]
  - Influenza like illness [Unknown]
  - Blood glucose increased [Unknown]
  - Nasopharyngitis [Unknown]
  - Energy increased [Unknown]
  - Metabolic disorder [Unknown]
  - Weight decreased [Unknown]
  - Dyspnoea [Unknown]
  - Pain [Recovered/Resolved]
  - Fatigue [Unknown]
  - Cough [Unknown]
  - Wrong technique in product usage process [Unknown]
